FAERS Safety Report 12883317 (Version 1)
Quarter: 2016Q4

REPORT INFORMATION
  Report Type: Spontaneous
  Country: FR (occurrence: FR)
  Receive Date: 20161025
  Receipt Date: 20161025
  Transmission Date: 20170207
  Serious: Yes (Hospitalization)
  Sender: FDA-Public Use
  Company Number: FR-TEVA-702207ROM

PATIENT
  Age: 78 Year
  Sex: Female

DRUGS (10)
  1. OFLOXACINE MERCK 200 MG [Suspect]
     Active Substance: OFLOXACIN
     Indication: PYELONEPHRITIS
     Dosage: 3 DOSAGE FORMS DAILY;
     Route: 048
     Dates: start: 20160724, end: 20160725
  2. KARDEGIC [Concomitant]
     Active Substance: ASPIRIN LYSINE
  3. CHONDROSULF [Concomitant]
     Active Substance: CHONDROITIN SULFATE (CHICKEN)
  4. CEFOTAXIME PANPHARMA 1 G [Suspect]
     Active Substance: CEFOTAXIME SODIUM
     Indication: PYELONEPHRITIS
     Dosage: 3 GRAM DAILY;
     Route: 041
     Dates: start: 20160721, end: 201607
  5. CEFTRIAXONE WINTHROP [Suspect]
     Active Substance: CEFTRIAXONE
     Indication: PYELONEPHRITIS
     Dosage: 2 GRAM DAILY;
     Route: 058
     Dates: start: 20160725, end: 20160821
  6. LEVOTHYROX 100 MCG [Concomitant]
  7. AMIKACINE MYLAN 500 MG [Suspect]
     Active Substance: AMIKACIN
     Indication: PYELONEPHRITIS
     Dosage: 1800 MILLIGRAM DAILY;
     Route: 041
     Dates: start: 20160722, end: 20160723
  8. PRITOR 80 MG [Concomitant]
  9. COTRIMOXAZOLE [Suspect]
     Active Substance: SULFAMETHOXAZOLE\TRIMETHOPRIM
     Indication: PYELONEPHRITIS
     Dosage: 3 DOSAGE FORMS DAILY;
     Route: 048
     Dates: start: 20160725, end: 20160731
  10. CEFOTAXIME PANPHARMA 1 G [Suspect]
     Active Substance: CEFOTAXIME SODIUM
     Dosage: 6 GRAM DAILY;
     Route: 041
     Dates: start: 201607, end: 20160725

REACTIONS (2)
  - Hyperthermia [Recovered/Resolved]
  - Clostridium difficile colitis [Recovering/Resolving]

NARRATIVE: CASE EVENT DATE: 20160826
